FAERS Safety Report 9136602 (Version 1)
Quarter: 2013Q1

REPORT INFORMATION
  Report Type: Spontaneous
  Country: US (occurrence: US)
  Receive Date: 20130304
  Receipt Date: 20130304
  Transmission Date: 20140127
  Serious: No
  Sender: FDA-Public Use
  Company Number: US-ABBOTT-13P-163-1043109-00

PATIENT
  Sex: Female

DRUGS (1)
  1. ANDROGEL [Suspect]
     Indication: PRODUCT USED FOR UNKNOWN INDICATION
     Dosage: PACKETS

REACTIONS (7)
  - Seborrhoea [Unknown]
  - Accidental exposure to product [Unknown]
  - Blood testosterone increased [Unknown]
  - Dry skin [Unknown]
  - Hair growth abnormal [Unknown]
  - Alopecia [Unknown]
  - Acne [Unknown]
